FAERS Safety Report 18031453 (Version 1)
Quarter: 2020Q3

REPORT INFORMATION
  Report Type: Spontaneous
  Country: US (occurrence: US)
  Receive Date: 20200716
  Receipt Date: 20200716
  Transmission Date: 20201103
  Serious: Yes (Hospitalization)
  Sender: FDA-Public Use
  Company Number: None

PATIENT
  Age: 51 Year
  Sex: Male

DRUGS (10)
  1. ATENOLOL. [Concomitant]
     Active Substance: ATENOLOL
     Dates: start: 20200412
  2. ROSUVASTATIN. [Concomitant]
     Active Substance: ROSUVASTATIN
     Dates: start: 20200412
  3. EZETIMIBE. [Concomitant]
     Active Substance: EZETIMIBE
     Dates: start: 20200624
  4. METFORMIN [Concomitant]
     Active Substance: METFORMIN HYDROCHLORIDE
     Dates: start: 20200520
  5. PRASUGREL. [Concomitant]
     Active Substance: PRASUGREL
     Dates: start: 20200518
  6. REPATHA [Suspect]
     Active Substance: EVOLOCUMAB
     Indication: HYPERLIPIDAEMIA
     Dosage: ?          OTHER FREQUENCY:EVERY 2 WEEKS;?
     Route: 058
     Dates: start: 20200528
  7. ISOSORBIDE MONO [Concomitant]
     Dates: start: 20200416
  8. LISINOPRIL. [Concomitant]
     Active Substance: LISINOPRIL
     Dates: start: 20200410
  9. CLOPIDOGREL [Concomitant]
     Active Substance: CLOPIDOGREL BISULFATE
     Dates: start: 20200129
  10. RANOLAZINE. [Concomitant]
     Active Substance: RANOLAZINE
     Dates: start: 20200528

REACTIONS (1)
  - Therapy interrupted [None]
